FAERS Safety Report 12263970 (Version 1)
Quarter: 2016Q2

REPORT INFORMATION
  Report Type: Report from Study
  Country: US (occurrence: US)
  Receive Date: 20160413
  Receipt Date: 20160413
  Transmission Date: 20160815
  Serious: Yes (Death)
  Sender: FDA-Public Use
  Company Number: US-JNJFOC-20160410862

PATIENT
  Sex: Female

DRUGS (8)
  1. IMBRUVICA [Suspect]
     Active Substance: IBRUTINIB
     Indication: CHRONIC LYMPHOCYTIC LEUKAEMIA
  2. ACYCLOVIR. [Concomitant]
     Active Substance: ACYCLOVIR
  3. OXYCODONE [Concomitant]
     Active Substance: OXYCODONE
  4. OXYCODONE [Concomitant]
     Active Substance: OXYCODONE
  5. PROMETHAZINE [Concomitant]
     Active Substance: PROMETHAZINE\PROMETHAZINE HYDROCHLORIDE
  6. POTASSIUM CHLORIDE. [Concomitant]
     Active Substance: POTASSIUM CHLORIDE
  7. FUROSEMIDE. [Concomitant]
     Active Substance: FUROSEMIDE
  8. ONDANSETRON [Concomitant]
     Active Substance: ONDANSETRON

REACTIONS (1)
  - Death [Fatal]
